FAERS Safety Report 22976536 (Version 6)
Quarter: 2024Q1

REPORT INFORMATION
  Report Type: Report from Study
  Country: US (occurrence: US)
  Receive Date: 20230925
  Receipt Date: 20240326
  Transmission Date: 20240409
  Serious: Yes (Other)
  Sender: FDA-Public Use
  Company Number: US-ABBVIE-5418953

PATIENT
  Sex: Male
  Weight: 75 kg

DRUGS (4)
  1. HUMIRA [Suspect]
     Active Substance: ADALIMUMAB
     Indication: Rheumatoid arthritis
     Dosage: STARTED 22 OR 23 YEARS AGO?FORM STRENGTH: 40 MILLIGRAM?CITRATE FREE
     Route: 058
     Dates: start: 2001, end: 20230814
  2. HUMIRA [Suspect]
     Active Substance: ADALIMUMAB
     Dosage: RESTARTED ON 14 SEP 2023?FORM STRENGTH: 40 MILLIGRAM?CITRATE FREE
     Route: 058
     Dates: start: 20230914
  3. HUMIRA [Suspect]
     Active Substance: ADALIMUMAB
     Route: 058
  4. METHOTREXATE [Concomitant]
     Active Substance: METHOTREXATE
     Indication: Rheumatoid arthritis

REACTIONS (13)
  - Rheumatoid lung [Recovering/Resolving]
  - Pain [Unknown]
  - Lung disorder [Unknown]
  - Lung disorder [Recovering/Resolving]
  - Apnoea [Unknown]
  - Sleep apnoea syndrome [Recovering/Resolving]
  - Myocardial infarction [Unknown]
  - Back disorder [Unknown]
  - Diaphragm muscle weakness [Recovering/Resolving]
  - Dyspnoea [Recovering/Resolving]
  - Lung perforation [Unknown]
  - Oxygen saturation abnormal [Recovering/Resolving]
  - Sinusitis [Unknown]

NARRATIVE: CASE EVENT DATE: 20100101
